FAERS Safety Report 24692055 (Version 1)
Quarter: 2024Q4

REPORT INFORMATION
  Report Type: Spontaneous
  Country: US (occurrence: US)
  Receive Date: 20241203
  Receipt Date: 20241203
  Transmission Date: 20250114
  Serious: Yes (Death, Other)
  Sender: UPSHER SMITH LABORATORIES
  Company Number: US-UPSHER-SMITH LABORATORIES, LLC-20241100248

PATIENT
  Age: 0 Year

DRUGS (1)
  1. VIGADRONE [Suspect]
     Active Substance: VIGABATRIN
     Indication: Infantile spasms
     Dosage: 500 MG, BID 10 ML
     Route: 065
     Dates: start: 20240817

REACTIONS (1)
  - Death [Fatal]

NARRATIVE: CASE EVENT DATE: 20241118
